FAERS Safety Report 9167759 (Version 2)
Quarter: 2013Q2

REPORT INFORMATION
  Report Type: Spontaneous
  Country: US (occurrence: US)
  Receive Date: 20130318
  Receipt Date: 20130503
  Transmission Date: 20140414
  Serious: No
  Sender: FDA-Public Use
  Company Number: US-PFIZER INC-2013085543

PATIENT
  Age: 61 Year
  Sex: Female
  Weight: 97.51 kg

DRUGS (2)
  1. ADVIL MIGRAINE [Suspect]
     Indication: MIGRAINE
     Dosage: UNK
     Route: 048
  2. ADVIL MIGRAINE [Suspect]
     Dosage: UNK, ONCE A DAY
     Route: 048

REACTIONS (1)
  - Drug ineffective [Unknown]
